FAERS Safety Report 16298220 (Version 2)
Quarter: 2021Q1

REPORT INFORMATION
  Report Type: Spontaneous
  Country: US (occurrence: US)
  Receive Date: 20190510
  Receipt Date: 20210129
  Transmission Date: 20210419
  Serious: Yes (Death, Other)
  Sender: FDA-Public Use
  Company Number: US-ASTRAZENECA-2019SE64892

PATIENT
  Age: 58 Year
  Sex: Female
  Weight: 49 kg

DRUGS (48)
  1. PRILOSEC [Suspect]
     Active Substance: OMEPRAZOLE MAGNESIUM
     Route: 048
     Dates: start: 201203, end: 201508
  2. METOPROLOL. [Concomitant]
     Active Substance: METOPROLOL
     Indication: CHEST PAIN
  3. LANTUS [Concomitant]
     Active Substance: INSULIN GLARGINE
  4. IBUPROFEN. [Concomitant]
     Active Substance: IBUPROFEN
  5. ATIVAN [Concomitant]
     Active Substance: LORAZEPAM
  6. KEFLEX [Concomitant]
     Active Substance: CEPHALEXIN
  7. HYDRALAZINE HYDROCHLORIDE. [Concomitant]
     Active Substance: HYDRALAZINE HYDROCHLORIDE
  8. DOXAZOSIN [Concomitant]
     Active Substance: DOXAZOSIN MESYLATE
     Indication: HYPERTENSION
  9. ASPIRIN. [Concomitant]
     Active Substance: ASPIRIN
     Indication: BLOOD VISCOSITY ABNORMAL
  10. AMOXICILLIN. [Concomitant]
     Active Substance: AMOXICILLIN
  11. TRANSDERM [Concomitant]
  12. GENTAMICIN. [Concomitant]
     Active Substance: GENTAMICIN
  13. ONDANSETRON HYDROCHLORIDE. [Concomitant]
     Active Substance: ONDANSETRON HYDROCHLORIDE
  14. MIRALAX [Concomitant]
     Active Substance: POLYETHYLENE GLYCOL 3350
  15. ATORVASTATIN [Concomitant]
     Active Substance: ATORVASTATIN
     Indication: BLOOD CHOLESTEROL ABNORMAL
  16. METOPROLOL. [Concomitant]
     Active Substance: METOPROLOL
     Indication: HYPERTENSION
  17. PEPTO?BISMOL [Concomitant]
     Active Substance: BISMUTH SUBSALICYLATE
  18. HALDOL [Concomitant]
     Active Substance: HALOPERIDOL
  19. REGLAN [Concomitant]
     Active Substance: METOCLOPRAMIDE HYDROCHLORIDE
  20. POTASSIUM CHLORIDE. [Concomitant]
     Active Substance: POTASSIUM CHLORIDE
  21. MAGNESIUM OXIDE. [Concomitant]
     Active Substance: MAGNESIUM OXIDE
  22. MAGNESIUM OXIDE. [Concomitant]
     Active Substance: MAGNESIUM OXIDE
  23. HYDROMORPHONE HYDROCHLORIDE. [Concomitant]
     Active Substance: HYDROMORPHONE HYDROCHLORIDE
  24. PRAVACHOL [Concomitant]
     Active Substance: PRAVASTATIN SODIUM
  25. SODIUM CHLORIDE. [Concomitant]
     Active Substance: SODIUM CHLORIDE
  26. METOPROLOL TARTRATE. [Concomitant]
     Active Substance: METOPROLOL TARTRATE
  27. ACETAMINOPHEN. [Concomitant]
     Active Substance: ACETAMINOPHEN
  28. SCOPOLAMINE [Concomitant]
     Active Substance: SCOPOLAMINE
  29. VANCOMYCIN [Concomitant]
     Active Substance: VANCOMYCIN
  30. DEXTROSE. [Concomitant]
     Active Substance: DEXTROSE
  31. PROVENTRIL [Concomitant]
  32. BENAZEPRIL [Concomitant]
     Active Substance: BENAZEPRIL HYDROCHLORIDE
     Indication: HYPERTENSION
  33. AUGMENTIN [Concomitant]
     Active Substance: AMOXICILLIN\CLAVULANATE POTASSIUM
  34. OFIRMEV [Concomitant]
     Active Substance: ACETAMINOPHEN
  35. NORVASC [Concomitant]
     Active Substance: AMLODIPINE BESYLATE
  36. PRILOSEC OTC [Suspect]
     Active Substance: OMEPRAZOLE MAGNESIUM
     Indication: GASTROOESOPHAGEAL REFLUX DISEASE
     Route: 048
     Dates: start: 201203, end: 201508
  37. AMITRYPTALIN [Concomitant]
     Indication: DEPRESSION
  38. PEPCID [Concomitant]
     Active Substance: FAMOTIDINE
  39. BENAZEPRIL [Concomitant]
     Active Substance: BENAZEPRIL HYDROCHLORIDE
  40. ONDANSETRON [Concomitant]
     Active Substance: ONDANSETRON
  41. NOVOLOG [Concomitant]
     Active Substance: INSULIN ASPART
  42. MORPHINE [Concomitant]
     Active Substance: MORPHINE
  43. GABAPENTIN. [Concomitant]
     Active Substance: GABAPENTIN
  44. MIRALAX [Concomitant]
     Active Substance: POLYETHYLENE GLYCOL 3350
  45. POTASSIUM CHLORIDE. [Concomitant]
     Active Substance: POTASSIUM CHLORIDE
  46. RELION [Concomitant]
  47. ATORVASTATIN [Concomitant]
     Active Substance: ATORVASTATIN
  48. HYDROMORPHONE HYDROCHLORIDE. [Concomitant]
     Active Substance: HYDROMORPHONE HYDROCHLORIDE

REACTIONS (6)
  - End stage renal disease [Fatal]
  - Nephrogenic anaemia [Unknown]
  - Chronic kidney disease [Unknown]
  - Hyperparathyroidism secondary [Unknown]
  - Acute kidney injury [Unknown]
  - Renal failure [Unknown]

NARRATIVE: CASE EVENT DATE: 2015
